FAERS Safety Report 8023768-4 (Version None)
Quarter: 2012Q1

REPORT INFORMATION
  Report Type: 
  Country: None (occurrence: None)
  Receive Date: 20120105
  Receipt Date: 20111224
  Transmission Date: 20120608
  Serious: Yes (Other)
  Sender: FDA-Public Use
  Company Number: US-AMGEN-USASP2011068914

PATIENT
  Sex: Female

DRUGS (3)
  1. IRON [Concomitant]
  2. ARANESP [Suspect]
     Indication: ANAEMIA
     Dosage: 100 MUG, UNK
     Dates: start: 20091001
  3. METHOTREXATE [Concomitant]
     Indication: RHEUMATOID ARTHRITIS

REACTIONS (5)
  - BACK PAIN [None]
  - MALAISE [None]
  - VESSEL PUNCTURE SITE HAEMATOMA [None]
  - HYPERTROPHIC CARDIOMYOPATHY [None]
  - MUSCLE SPASMS [None]
